FAERS Safety Report 16100542 (Version 2)
Quarter: 2019Q2

REPORT INFORMATION
  Report Type: Spontaneous
  Country: US (occurrence: US)
  Receive Date: 20190321
  Receipt Date: 20190510
  Transmission Date: 20190711
  Serious: Yes (Other)
  Sender: FDA-Public Use
  Company Number: US-GILEAD-2019-0397110

PATIENT
  Age: 71 Year
  Sex: Female

DRUGS (15)
  1. ONDANSETRON [Concomitant]
     Active Substance: ONDANSETRON
  2. YESCARTA [Suspect]
     Active Substance: AXICABTAGENE CILOLEUCEL
     Indication: DIFFUSE LARGE B-CELL LYMPHOMA RECURRENT
     Dosage: UNK
     Route: 042
     Dates: start: 20190122, end: 20190122
  3. LOPERAMIDE [Concomitant]
     Active Substance: LOPERAMIDE
  4. PYRIDOXINE [Concomitant]
     Active Substance: PYRIDOXINE
  5. TAMIFLU [Concomitant]
     Active Substance: OSELTAMIVIR PHOSPHATE
  6. FLUTICASONE. [Concomitant]
     Active Substance: FLUTICASONE
  7. ATIVAN [Concomitant]
     Active Substance: LORAZEPAM
  8. B COMPLEX [VITAMIN B COMPLEX] [Concomitant]
  9. ACYCLOVIR [ACICLOVIR] [Concomitant]
     Active Substance: ACYCLOVIR
  10. ACETAMINOPHEN. [Concomitant]
     Active Substance: ACETAMINOPHEN
  11. ISONIAZID. [Concomitant]
     Active Substance: ISONIAZID
  12. PENTAMIDINE [Concomitant]
     Active Substance: PENTAMIDINE
  13. VITAMIN D3 [Concomitant]
     Active Substance: CHOLECALCIFEROL
  14. SYNTHROID [Concomitant]
     Active Substance: LEVOTHYROXINE SODIUM
  15. TRAZODONE [Concomitant]
     Active Substance: TRAZODONE HYDROCHLORIDE

REACTIONS (6)
  - Pulmonary fibrosis [Unknown]
  - Cytokine release syndrome [Recovered/Resolved]
  - Dysuria [Unknown]
  - Pollakiuria [Unknown]
  - Bronchitis [Unknown]
  - Pulmonary mass [Unknown]

NARRATIVE: CASE EVENT DATE: 20190126
